FAERS Safety Report 17700664 (Version 3)
Quarter: 2023Q1

REPORT INFORMATION
  Report Type: Spontaneous
  Country: HU (occurrence: HU)
  Receive Date: 20200423
  Receipt Date: 20230214
  Transmission Date: 20230418
  Serious: Yes (Other)
  Sender: FDA-Public Use
  Company Number: HU-PFIZER INC-2020115844

PATIENT
  Age: 35 Year
  Sex: Female
  Weight: 53 kg

DRUGS (8)
  1. LIPIDIL [Suspect]
     Active Substance: FENOFIBRATE
     Indication: Product used for unknown indication
     Dosage: 267 MG, QD, (DRUG TAKEN BY THE FATHER)
     Route: 065
     Dates: start: 20181213
  2. MONTELUKAST [Suspect]
     Active Substance: MONTELUKAST SODIUM
     Indication: Product used for unknown indication
     Dosage: 10 MG, QD(DRUG TAKEN BY THE FATHER)
     Route: 065
     Dates: start: 20190401
  3. NADROPARIN CALCIUM [Suspect]
     Active Substance: NADROPARIN CALCIUM
     Indication: Factor V Leiden mutation
     Dosage: 0.4 ML, 1X/DAY
     Route: 058
     Dates: start: 20190712
  4. NADROPARIN CALCIUM [Suspect]
     Active Substance: NADROPARIN CALCIUM
     Dosage: 0.3 MILLIGRAM,TOTAL
     Route: 058
     Dates: start: 201907
  5. XALATAN [Suspect]
     Active Substance: LATANOPROST
     Indication: Glaucoma
     Dosage: 1-1 DROP, DAILY (DRUG TAKEN BY THE FATHER)
     Route: 065
     Dates: start: 20180424
  6. EUTHYROX [Suspect]
     Active Substance: LEVOTHYROXINE SODIUM
     Indication: Hypothyroidism
     Dosage: 50 MG, CONTINUOUS SINCE SPRING OF 2010
     Route: 065
     Dates: start: 201003
  7. CIPRALEX [Suspect]
     Active Substance: ESCITALOPRAM OXALATE
     Indication: Obsessive-compulsive disorder
     Dosage: 10 MG, QD, IN MORNING(DRUG TAKEN BY THE FATHER)
     Route: 065
     Dates: start: 20120312
  8. CIPRALEX [Suspect]
     Active Substance: ESCITALOPRAM OXALATE
     Dosage: 20 MG, QD, (DRUG TAKEN BY THE FATHER)
     Route: 065
     Dates: start: 20120312

REACTIONS (4)
  - Abortion spontaneous [Recovered/Resolved]
  - Exposure via body fluid [Unknown]
  - Maternal exposure during pregnancy [Unknown]
  - Paternal exposure during pregnancy [Unknown]

NARRATIVE: CASE EVENT DATE: 20190101
